FAERS Safety Report 11849072 (Version 1)
Quarter: 2015Q4

REPORT INFORMATION
  Report Type: Spontaneous
  Country: US (occurrence: US)
  Receive Date: 20151218
  Receipt Date: 20151218
  Transmission Date: 20160305
  Serious: No
  Sender: FDA-Public Use
  Company Number: PHEH2015US026382

PATIENT
  Sex: Male

DRUGS (1)
  1. TASIGNA [Suspect]
     Active Substance: NILOTINIB
     Indication: SOFT TISSUE SARCOMA
     Dosage: 150 MG, BID
     Route: 048

REACTIONS (2)
  - Oral pain [Not Recovered/Not Resolved]
  - Product use issue [Unknown]
